FAERS Safety Report 9145264 (Version 1)
Quarter: 2013Q1

REPORT INFORMATION
  Report Type: Spontaneous
  Country: US (occurrence: None)
  Receive Date: 20130226
  Receipt Date: 20130226
  Transmission Date: 20140127
  Serious: Yes (Hospitalization)
  Sender: FDA-Public Use
  Company Number: None

PATIENT
  Age: 48 Year
  Sex: Female
  Weight: 56.7 kg

DRUGS (1)
  1. MODAFINIL [Suspect]
     Indication: SOMNOLENCE
     Route: 048
     Dates: start: 20130220, end: 20130221

REACTIONS (9)
  - Vertigo [None]
  - Dizziness [None]
  - Vomiting [None]
  - Myoclonus [None]
  - Ataxia [None]
  - Hyperhidrosis [None]
  - Hypertension [None]
  - Tachycardia [None]
  - Serotonin syndrome [None]
